FAERS Safety Report 8308187-5 (Version None)
Quarter: 2012Q2

REPORT INFORMATION
  Report Type: 
  Country: None (occurrence: None)
  Receive Date: 20120424
  Receipt Date: 20120409
  Transmission Date: 20120825
  Serious: Yes (Hospitalization)
  Sender: FDA-Public Use
  Company Number: JP-ROCHE-1059897

PATIENT
  Sex: Male
  Weight: 60 kg

DRUGS (10)
  1. DEXAMETHASONE SODIUM PHOSPHATE [Concomitant]
     Indication: PREMEDICATION
     Route: 041
     Dates: start: 20100120, end: 20100120
  2. OXALIPLATIN [Suspect]
     Indication: COLON CANCER RECURRENT
     Route: 041
     Dates: start: 20120120, end: 20120120
  3. AVASTIN [Suspect]
     Indication: COLON CANCER RECURRENT
     Route: 041
     Dates: start: 20120120, end: 20120120
  4. AMLODIPINE [Concomitant]
     Route: 048
  5. ALOXI [Concomitant]
     Indication: PREMEDICATION
     Route: 041
     Dates: start: 20120120, end: 20120120
  6. DAI-KENCHU-TO [Concomitant]
     Route: 048
     Dates: start: 20110803, end: 20120127
  7. XELODA [Suspect]
     Indication: COLON CANCER RECURRENT
     Route: 048
     Dates: start: 20120120, end: 20120127
  8. RHYTHMY [Concomitant]
     Indication: INSOMNIA
     Route: 048
     Dates: start: 20120110, end: 20120127
  9. LAMIVUDINE [Concomitant]
     Indication: HEPATITIS B
     Route: 048
     Dates: start: 20090101
  10. CANDESARTAN CILEXETIL [Concomitant]
     Route: 048

REACTIONS (5)
  - BLOOD ALKALINE PHOSPHATASE INCREASED [None]
  - ASPARTATE AMINOTRANSFERASE INCREASED [None]
  - ALANINE AMINOTRANSFERASE INCREASED [None]
  - C-REACTIVE PROTEIN INCREASED [None]
  - CONSTIPATION [None]
